FAERS Safety Report 6433157-1 (Version None)
Quarter: 2009Q4

REPORT INFORMATION
  Report Type: 
  Country: None (occurrence: None)
  Receive Date: 20091109
  Receipt Date: 20091028
  Transmission Date: 20100525
  Serious: Yes (Death, Hospitalization)
  Sender: FDA-Public Use
  Company Number: PHHY2009ZA46898

PATIENT
  Age: 73 Year
  Sex: Female

DRUGS (3)
  1. EXJADE [Suspect]
     Indication: MYELOFIBROSIS
  2. EPREX [Concomitant]
  3. NEUPOGEN [Concomitant]

REACTIONS (11)
  - CARDIAC DISORDER [None]
  - CARDIAC ENZYMES INCREASED [None]
  - DEATH [None]
  - HEPATIC ENZYME INCREASED [None]
  - HYPERGLYCAEMIA [None]
  - HYPERTENSION [None]
  - HYPERTHERMIA [None]
  - INFLAMMATION [None]
  - MALIGNANT NEOPLASM PROGRESSION [None]
  - RASH [None]
  - RENAL DISORDER [None]
